FAERS Safety Report 17198919 (Version 2)
Quarter: 2020Q1

REPORT INFORMATION
  Report Type: Report from Study
  Country: CA (occurrence: CA)
  Receive Date: 20191225
  Receipt Date: 20200102
  Transmission Date: 20200409
  Serious: Yes (Other)
  Sender: FDA-Public Use
  Company Number: NVSC2019CA014616

PATIENT
  Sex: Female

DRUGS (6)
  1. ENBREL [Concomitant]
     Active Substance: ETANERCEPT
     Indication: PRODUCT USED FOR UNKNOWN INDICATION
     Route: 065
  2. CELEBREX [Concomitant]
     Active Substance: CELECOXIB
     Indication: PRODUCT USED FOR UNKNOWN INDICATION
     Route: 065
  3. SIMPONI [Concomitant]
     Active Substance: GOLIMUMAB
     Indication: PRODUCT USED FOR UNKNOWN INDICATION
     Route: 065
  4. COSENTYX [Suspect]
     Active Substance: SECUKINUMAB
     Indication: ANKYLOSING SPONDYLITIS
     Dosage: UNK
     Route: 058
  5. HUMIRA [Concomitant]
     Active Substance: ADALIMUMAB
     Indication: PRODUCT USED FOR UNKNOWN INDICATION
     Route: 065
  6. NAPROXEN. [Concomitant]
     Active Substance: NAPROXEN
     Indication: PRODUCT USED FOR UNKNOWN INDICATION
     Route: 065

REACTIONS (23)
  - Fatigue [Unknown]
  - Spondyloarthropathy [Unknown]
  - Enthesopathy [Unknown]
  - Sacroiliitis [Unknown]
  - Osteoarthritis [Unknown]
  - Back pain [Unknown]
  - Eye discharge [Unknown]
  - Lordosis [Unknown]
  - Vertebral osteophyte [Unknown]
  - Discomfort [Unknown]
  - Weight decreased [Unknown]
  - Arthralgia [Unknown]
  - Joint swelling [Recovered/Resolved]
  - Pain in extremity [Unknown]
  - Colitis ulcerative [Unknown]
  - Neck pain [Unknown]
  - Musculoskeletal stiffness [Unknown]
  - Intervertebral disc degeneration [Unknown]
  - Joint dislocation [Unknown]
  - Joint effusion [Unknown]
  - Back disorder [Unknown]
  - Eye pain [Unknown]
  - Scoliosis [Unknown]

NARRATIVE: CASE EVENT DATE: 2019
